FAERS Safety Report 9326243 (Version 1)
Quarter: 2013Q3

REPORT INFORMATION
  Report Type: Spontaneous
  Country: US (occurrence: None)
  Receive Date: 20130603
  Receipt Date: 20130603
  Transmission Date: 20140515
  Serious: Yes (Other)
  Sender: FDA-Public Use
  Company Number: None

PATIENT
  Age: 74 Year
  Sex: Female

DRUGS (1)
  1. GLUCOSE OXIDASE + LACTOPEROXIDASE + LYSO [Suspect]

REACTIONS (5)
  - Gastric ulcer [None]
  - Accidental exposure to product [None]
  - Dyspepsia [None]
  - Condition aggravated [None]
  - Therapeutic response unexpected [None]
